FAERS Safety Report 5480267-1 (Version None)
Quarter: 2007Q4

REPORT INFORMATION
  Report Type: 
  Country: None (occurrence: None)
  Receive Date: 20071009
  Receipt Date: 20071002
  Transmission Date: 20080405
  Serious: Yes (Hospitalization)
  Sender: FDA-Public Use
  Company Number: FR-BRISTOL-MYERS SQUIBB COMPANY-13927397

PATIENT
  Age: 40 Year
  Sex: Male
  Weight: 69 kg

DRUGS (8)
  1. TAXOL [Suspect]
     Dosage: INTIATED AT THE DOSE OF 100 MG/M2
     Route: 042
     Dates: start: 20070713
  2. ACETYLSALICYLIC ACID [Suspect]
     Indication: ARTHRALGIA
  3. TELZIR [Concomitant]
  4. NORVIR [Concomitant]
  5. REYATAZ [Concomitant]
  6. METHYLPREDNISOLONE [Concomitant]
  7. ZOFRAN [Concomitant]
  8. POLARAMINE [Concomitant]

REACTIONS (3)
  - ARTHRALGIA [None]
  - HYPERSENSITIVITY [None]
  - MYELOCYTOSIS [None]
